FAERS Safety Report 7058736-2 (Version None)
Quarter: 2010Q4

REPORT INFORMATION
  Report Type: 
  Country: None (occurrence: None)
  Receive Date: 20101022
  Receipt Date: 20101013
  Transmission Date: 20110411
  Serious: Yes (Other)
  Sender: FDA-Public Use
  Company Number: US-ABBOTT-10P-163-0678690-00

PATIENT
  Sex: Female
  Weight: 69.008 kg

DRUGS (7)
  1. HUMIRA [Suspect]
     Indication: RHEUMATOID ARTHRITIS
     Dates: start: 20090401
  2. METHOTREXATE [Suspect]
     Indication: RHEUMATOID ARTHRITIS
     Route: 050
  3. FOLIC ACID [Concomitant]
     Indication: VITAMIN SUPPLEMENTATION
  4. NEXIUM [Concomitant]
     Indication: ABDOMINAL DISCOMFORT
  5. FOSAMAX PLUS D [Concomitant]
     Indication: BONE DISORDER
  6. PREDNISONE [Concomitant]
     Indication: RHEUMATOID ARTHRITIS
  7. PRIMROSE OIL [Concomitant]
     Indication: BREAST DISORDER

REACTIONS (7)
  - COLONIC POLYP [None]
  - COUGH [None]
  - DRUG INEFFECTIVE [None]
  - DRY EYE [None]
  - INJECTION SITE ERYTHEMA [None]
  - INJECTION SITE MACULE [None]
  - WHEEZING [None]
